FAERS Safety Report 23758466 (Version 1)
Quarter: 2024Q2

REPORT INFORMATION
  Report Type: Other
  Country: BR (occurrence: BR)
  Receive Date: 20240418
  Receipt Date: 20240418
  Transmission Date: 20240716
  Serious: No
  Sender: FDA-Public Use
  Company Number: BR-WT-2024-AMR-028432

PATIENT
  Sex: Female

DRUGS (1)
  1. AVODART [Suspect]
     Active Substance: DUTASTERIDE
     Route: 065

REACTIONS (2)
  - Contraindicated product prescribed [Unknown]
  - Product prescribing issue [Unknown]
